FAERS Safety Report 22393656 (Version 1)
Quarter: 2023Q2

REPORT INFORMATION
  Report Type: Report from Study
  Country: US (occurrence: US)
  Receive Date: 20230601
  Receipt Date: 20230601
  Transmission Date: 20230721
  Serious: Yes (Hospitalization, Other)
  Sender: FDA-Public Use
  Company Number: US-TAKEDA-2023TUS011770

PATIENT
  Age: 71 Year
  Sex: Male

DRUGS (16)
  1. TEDUGLUTIDE [Suspect]
     Active Substance: TEDUGLUTIDE
     Indication: Short-bowel syndrome
     Dosage: 0.15 MILLIGRAM, QD
     Route: 058
     Dates: start: 202212
  2. TEDUGLUTIDE [Suspect]
     Active Substance: TEDUGLUTIDE
     Indication: Short-bowel syndrome
     Dosage: 0.15 MILLIGRAM, QD
     Route: 058
     Dates: start: 202212
  3. TEDUGLUTIDE [Suspect]
     Active Substance: TEDUGLUTIDE
     Indication: Short-bowel syndrome
     Dosage: 0.15 MILLIGRAM, QD
     Route: 058
     Dates: start: 202212
  4. TEDUGLUTIDE [Suspect]
     Active Substance: TEDUGLUTIDE
     Indication: Short-bowel syndrome
     Dosage: 0.15 MILLIGRAM, QD
     Route: 058
     Dates: start: 202212
  5. TEDUGLUTIDE [Suspect]
     Active Substance: TEDUGLUTIDE
     Indication: Malnutrition
     Dosage: 0.15 MILLILITER, QD
     Route: 058
     Dates: start: 20221228
  6. TEDUGLUTIDE [Suspect]
     Active Substance: TEDUGLUTIDE
     Indication: Malnutrition
     Dosage: 0.15 MILLILITER, QD
     Route: 058
     Dates: start: 20221228
  7. TEDUGLUTIDE [Suspect]
     Active Substance: TEDUGLUTIDE
     Indication: Malnutrition
     Dosage: 0.15 MILLILITER, QD
     Route: 058
     Dates: start: 20221228
  8. TEDUGLUTIDE [Suspect]
     Active Substance: TEDUGLUTIDE
     Indication: Malnutrition
     Dosage: 0.15 MILLILITER, QD
     Route: 058
     Dates: start: 20221228
  9. TEDUGLUTIDE [Suspect]
     Active Substance: TEDUGLUTIDE
     Indication: Colostomy
     Dosage: 1.5 MILLIGRAM, QD
     Route: 058
     Dates: start: 20221230
  10. TEDUGLUTIDE [Suspect]
     Active Substance: TEDUGLUTIDE
     Indication: Colostomy
     Dosage: 1.5 MILLIGRAM, QD
     Route: 058
     Dates: start: 20221230
  11. TEDUGLUTIDE [Suspect]
     Active Substance: TEDUGLUTIDE
     Indication: Colostomy
     Dosage: 1.5 MILLIGRAM, QD
     Route: 058
     Dates: start: 20221230
  12. TEDUGLUTIDE [Suspect]
     Active Substance: TEDUGLUTIDE
     Indication: Colostomy
     Dosage: 1.5 MILLIGRAM, QD
     Route: 058
     Dates: start: 20221230
  13. TEDUGLUTIDE [Suspect]
     Active Substance: TEDUGLUTIDE
     Indication: Ileostomy
     Dosage: 0.15 MILLILITER, QD
     Route: 058
     Dates: start: 202212
  14. TEDUGLUTIDE [Suspect]
     Active Substance: TEDUGLUTIDE
     Indication: Ileostomy
     Dosage: 0.15 MILLILITER, QD
     Route: 058
     Dates: start: 202212
  15. TEDUGLUTIDE [Suspect]
     Active Substance: TEDUGLUTIDE
     Indication: Ileostomy
     Dosage: 0.15 MILLILITER, QD
     Route: 058
     Dates: start: 202212
  16. TEDUGLUTIDE [Suspect]
     Active Substance: TEDUGLUTIDE
     Indication: Ileostomy
     Dosage: 0.15 MILLILITER, QD
     Route: 058
     Dates: start: 202212

REACTIONS (5)
  - Vascular device infection [Unknown]
  - Gastric ulcer haemorrhage [Unknown]
  - Fluid retention [Unknown]
  - Hypervolaemia [Unknown]
  - Amnesia [Unknown]

NARRATIVE: CASE EVENT DATE: 20230120
